FAERS Safety Report 15219402 (Version 2)
Quarter: 2018Q4

REPORT INFORMATION
  Report Type: Spontaneous
  Country: US (occurrence: US)
  Receive Date: 20180731
  Receipt Date: 20181031
  Transmission Date: 20190204
  Serious: Yes (Hospitalization)
  Sender: FDA-Public Use
  Company Number: US-EMMAUS MEDICAL, INC.-EMM201806-000176

PATIENT
  Age: 5 Year
  Sex: Female

DRUGS (3)
  1. PENICILLIN V [Concomitant]
     Active Substance: PENICILLIN V
  2. POTASSIUM [Concomitant]
     Active Substance: POTASSIUM
  3. ENDARI [Suspect]
     Active Substance: GLUTAMINE
     Indication: SICKLE CELL DISEASE
     Route: 048
     Dates: start: 20180320

REACTIONS (2)
  - Nausea [Recovered/Resolved]
  - Sickle cell anaemia with crisis [Recovered/Resolved]

NARRATIVE: CASE EVENT DATE: 20180420
